FAERS Safety Report 9341488 (Version 3)
Quarter: 2013Q3

REPORT INFORMATION
  Report Type: Spontaneous
  Country: US (occurrence: US)
  Receive Date: 20130611
  Receipt Date: 20130812
  Transmission Date: 20140515
  Serious: Yes (Disabling, Other)
  Sender: FDA-Public Use
  Company Number: US-JNJFOC-20130602587

PATIENT
  Age: 13 Year
  Sex: Female
  Weight: 63.5 kg

DRUGS (3)
  1. TRINESSA 28 [Suspect]
     Indication: MENSTRUAL CYCLE MANAGEMENT
     Route: 048
     Dates: start: 201301, end: 20130201
  2. PROCRIN [Concomitant]
     Indication: DYSPNOEA
     Dosage: WHENEVER REQUIRED
     Route: 065
  3. ELIDEL [Concomitant]
     Indication: DRY SKIN
     Dosage: WHENEVER REQUIRED
     Route: 065

REACTIONS (9)
  - Hemiparesis [Recovering/Resolving]
  - Dyspnoea [Recovered/Resolved]
  - Speech disorder [Recovered/Resolved]
  - Abasia [Unknown]
  - Headache [Unknown]
  - Hyperhidrosis [Unknown]
  - Off label use [Unknown]
  - Dizziness [Unknown]
  - Decreased appetite [Unknown]
